FAERS Safety Report 7304370-6 (Version None)
Quarter: 2011Q1

REPORT INFORMATION
  Report Type: 
  Country: None (occurrence: None)
  Receive Date: 20110221
  Receipt Date: 20110217
  Transmission Date: 20110831
  Serious: Yes (Death, Hospitalization, Other)
  Sender: FDA-Public Use
  Company Number: AU-AMGEN-AUSSP2011007764

PATIENT
  Age: 80 Year
  Sex: Male

DRUGS (3)
  1. IMMUNOGLOBULINS [Concomitant]
  2. CORTICOSTEROIDS [Concomitant]
  3. NPLATE [Suspect]
     Indication: IDIOPATHIC THROMBOCYTOPENIC PURPURA

REACTIONS (4)
  - CARDIAC ARREST [None]
  - MYALGIA [None]
  - STAPHYLOCOCCAL BACTERAEMIA [None]
  - ARRHYTHMIA [None]
